FAERS Safety Report 6547971-5 (Version None)
Quarter: 2010Q1

REPORT INFORMATION
  Report Type: 
  Country: None (occurrence: None)
  Receive Date: 20100124
  Receipt Date: 20091203
  Transmission Date: 20100710
  Serious: No
  Sender: FDA-Public Use
  Company Number: US-ALEXION-A200901036

PATIENT
  Sex: Male

DRUGS (4)
  1. SOLIRIS [Suspect]
     Indication: PAROXYSMAL NOCTURNAL HAEMOGLOBINURIA
     Dosage: 600 MG, QW
     Route: 042
     Dates: start: 20091202
  2. COUMADIN [Concomitant]
     Dosage: 2.5 MG, QD
     Route: 048
  3. COUMADIN [Concomitant]
     Dosage: 10 MG, UNK
     Dates: start: 20091209
  4. PREDNISONE [Concomitant]
     Dosage: 20 MG, QD
     Route: 048

REACTIONS (2)
  - BACK PAIN [None]
  - HEADACHE [None]
